FAERS Safety Report 20071116 (Version 1)
Quarter: 2021Q4

REPORT INFORMATION
  Report Type: Report from Study
  Country: US (occurrence: US)
  Receive Date: 20211115
  Receipt Date: 20211115
  Transmission Date: 20220303
  Serious: No
  Sender: FDA-Public Use
  Company Number: US-BIONICAL EMAS-2021ETO000179

PATIENT

DRUGS (2)
  1. ALKINDI SPRINKLE [Suspect]
     Active Substance: HYDROCORTISONE
     Indication: Adrenogenital syndrome
     Dosage: 1 MG, QD
     Route: 048
     Dates: start: 2021
  2. ALKINDI SPRINKLE [Suspect]
     Active Substance: HYDROCORTISONE
     Dosage: 0.5 MG, BID
     Route: 048
     Dates: start: 2021

REACTIONS (6)
  - Retching [Recovered/Resolved]
  - Wrong technique in product usage process [Unknown]
  - Constipation [Unknown]
  - Illness [Recovered/Resolved]
  - Vomiting [Recovered/Resolved]
  - Diarrhoea [Unknown]

NARRATIVE: CASE EVENT DATE: 20210101
